FAERS Safety Report 6126976-2 (Version None)
Quarter: 2009Q1

REPORT INFORMATION
  Report Type: 
  Country: None (occurrence: None)
  Receive Date: 20090318
  Receipt Date: 20090305
  Transmission Date: 20090719
  Serious: Yes (Death)
  Sender: FDA-Public Use
  Company Number: B0442927A

PATIENT
  Age: 25 Year
  Sex: Female

DRUGS (2)
  1. LAMICTAL [Suspect]
     Indication: COMPLEX PARTIAL SEIZURES
     Dosage: 50 MG / TWICE PER DAY / ORAL
     Route: 048
  2. VALPROATE SODIUM [Concomitant]

REACTIONS (7)
  - ARRHYTHMIA [None]
  - DEPRESSED LEVEL OF CONSCIOUSNESS [None]
  - EPISTAXIS [None]
  - FATIGUE [None]
  - PULMONARY CONGESTION [None]
  - SUDDEN DEATH [None]
  - TREMOR [None]
